FAERS Safety Report 4601342-7 (Version None)
Quarter: 2005Q2

REPORT INFORMATION
  Report Type: 
  Country: None (occurrence: None)
  Receive Date: 20050204
  Receipt Date: 20040510
  Transmission Date: 20051028
  Serious: No
  Sender: FDA-Public Use
  Company Number: US-2004-025246

PATIENT
  Sex: Female

DRUGS (2)
  1. MIRENA [Suspect]
     Dosage: 20 UG, CONT, INTRA-UTERINE
     Route: 015
     Dates: start: 20040426
  2. PAXIL [Concomitant]

REACTIONS (4)
  - ANXIETY [None]
  - DEPRESSION [None]
  - NASAL CONGESTION [None]
  - NERVOUSNESS [None]
